FAERS Safety Report 4854412-2 (Version None)
Quarter: 2005Q4

REPORT INFORMATION
  Report Type: 
  Country: None (occurrence: None)
  Receive Date: 20051215
  Receipt Date: 20050930
  Transmission Date: 20060501
  Serious: Yes (Hospitalization)
  Sender: FDA-Public Use
  Company Number: 2005UW14756

PATIENT
  Age: 13847 Day
  Sex: Male
  Weight: 97.3 kg

DRUGS (3)
  1. CRESTOR [Suspect]
     Indication: HYPERLIPIDAEMIA
     Route: 048
     Dates: start: 20040901, end: 20050901
  2. FOSINOPRIL [Concomitant]
     Indication: HYPERTENSION
  3. MOBIC [Concomitant]

REACTIONS (4)
  - DEHYDRATION [None]
  - MYOSITIS [None]
  - POLYDIPSIA [None]
  - RHABDOMYOLYSIS [None]
